FAERS Safety Report 10206695 (Version 1)
Quarter: 2014Q2

REPORT INFORMATION
  Report Type: Spontaneous
  Country: US (occurrence: US)
  Receive Date: 20140530
  Receipt Date: 20140530
  Transmission Date: 20141212
  Serious: Yes (Hospitalization, Other)
  Sender: FDA-Public Use
  Company Number: US-BAYER-2014-076083

PATIENT
  Sex: 0

DRUGS (1)
  1. BAYER GENUINE ASPIRIN ORIGINAL STRENGTH [Suspect]
     Dosage: 1 DF, QD
     Route: 048

REACTIONS (3)
  - Haemorrhage [None]
  - Pneumonia [None]
  - Obstruction [None]
